FAERS Safety Report 8544091-5 (Version None)
Quarter: 2012Q3

REPORT INFORMATION
  Report Type: 
  Country: None (occurrence: None)
  Receive Date: 20120727
  Receipt Date: 20120718
  Transmission Date: 20120928
  Serious: Yes (Hospitalization, Disabling, Other)
  Sender: FDA-Public Use
  Company Number: PR-009507513-1110USA01115

PATIENT

DRUGS (6)
  1. VITAMIN D (UNSPECIFIED) [Concomitant]
     Indication: VITAMIN D DEFICIENCY
  2. CYANOCOBALAMIN [Concomitant]
  3. FOSAMAX [Suspect]
     Indication: OSTEOPOROSIS
     Dosage: 10 MG, QD
     Route: 048
     Dates: start: 19981109
  4. FOSAMAX [Suspect]
     Indication: OSTEOPENIA
     Dosage: 70 MG, QW
     Route: 048
     Dates: end: 20050418
  5. CALCIUM (UNSPECIFIED) [Concomitant]
     Indication: CALCIUM DEFICIENCY
     Dosage: UNK UNK, BID
  6. ASCORBIC ACID [Concomitant]
     Dosage: UNK UNK, QD

REACTIONS (33)
  - TIBIA FRACTURE [None]
  - PATELLA FRACTURE [None]
  - CATARACT [None]
  - CALCIUM DEFICIENCY [None]
  - VITAMIN D DEFICIENCY [None]
  - ULNA FRACTURE [None]
  - RETINAL DETACHMENT [None]
  - HYPERTENSION [None]
  - APHASIA [None]
  - SKIN IRRITATION [None]
  - DEVICE FAILURE [None]
  - WOUND DRAINAGE [None]
  - OSTEOARTHRITIS [None]
  - DIARRHOEA [None]
  - SPINAL OSTEOARTHRITIS [None]
  - HERPES ZOSTER [None]
  - COLONIC POLYP [None]
  - DRUG HYPERSENSITIVITY [None]
  - SACROILIITIS [None]
  - BURSITIS [None]
  - FIBULA FRACTURE [None]
  - LOW TURNOVER OSTEOPATHY [None]
  - SKIN ULCER [None]
  - HYPERLIPIDAEMIA [None]
  - MUSCLE DISORDER [None]
  - MYOFASCIAL PAIN SYNDROME [None]
  - ANKLE FRACTURE [None]
  - LIMB INJURY [None]
  - RADIUS FRACTURE [None]
  - HYPOKALAEMIA [None]
  - FALL [None]
  - MUSCULOSKELETAL PAIN [None]
  - OESOPHAGEAL STENOSIS [None]
